FAERS Safety Report 4309669-3 (Version None)
Quarter: 2004Q1

REPORT INFORMATION
  Report Type: 
  Country: None (occurrence: None)
  Receive Date: 20040301
  Receipt Date: 20040223
  Transmission Date: 20041129
  Serious: Yes (Death)
  Sender: FDA-Public Use
  Company Number: KII-2003-0003513

PATIENT
  Age: 25 Year
  Sex: Male

DRUGS (2)
  1. MS CONTIN [Suspect]
     Indication: CANCER PAIN
     Dosage: 100 MG, TID
  2. PERCOCET [Suspect]
     Indication: CANCER PAIN
     Dosage: 10 MG

REACTIONS (1)
  - SARCOMA [None]
